FAERS Safety Report 5487659-5 (Version None)
Quarter: 2007Q4

REPORT INFORMATION
  Report Type: 
  Country: None (occurrence: None)
  Receive Date: 20071017
  Receipt Date: 20071015
  Transmission Date: 20080405
  Serious: Yes (Life-Threatening, Hospitalization)
  Sender: FDA-Public Use
  Company Number: PHRM2007FR02377

PATIENT
  Age: 86 Year
  Sex: Male

DRUGS (29)
  1. PANTOPRAZOLE SODIUM [Concomitant]
     Dosage: 40 MG/DAY
     Dates: start: 20070713
  2. EQUANIL [Concomitant]
     Dosage: 500 MG/DAY
     Dates: start: 20070713
  3. BRICANYL [Concomitant]
     Dates: start: 19700101
  4. LASIX [Concomitant]
     Dosage: 40 MG/DAY
     Dates: start: 20070713, end: 20070718
  5. LASIX [Concomitant]
     Dosage: 20 MG/DAY
     Dates: start: 20070726
  6. VALIUM [Suspect]
     Indication: AGITATION
     Dosage: 2 MG/DAY
     Route: 042
     Dates: start: 20070801, end: 20070806
  7. ZOLPIDEM TARTRATE [Suspect]
     Dosage: 10 MG/DAY
     Route: 048
     Dates: start: 20070726, end: 20070806
  8. LOXAPINE HCL [Suspect]
     Dosage: 10 DROPS/DAY
     Route: 048
     Dates: start: 20070713, end: 20070718
  9. LOXAPINE HCL [Suspect]
     Dosage: 10 DROPS/DAY
     Route: 048
     Dates: start: 20070730, end: 20070730
  10. LOXAPINE HCL [Suspect]
     Dosage: 5 DROPS/DAY
     Route: 048
     Dates: start: 20070731, end: 20070806
  11. PARACETAMOL [Concomitant]
     Dosage: 1 G, QID
     Dates: start: 20070801
  12. LIORESAL [Suspect]
     Dosage: 5 MG, QD
     Route: 048
     Dates: start: 20070806
  13. LIORESAL [Suspect]
     Dosage: 5 MG, TID
     Route: 048
     Dates: start: 20070803, end: 20070805
  14. XATRAL [Suspect]
     Dosage: 10 MG/DAY
     Route: 048
     Dates: start: 20070724, end: 20070806
  15. RISPERDAL [Concomitant]
     Dosage: 0.5 MG/DAY
     Dates: start: 20070713
  16. SEROPRAM [Concomitant]
     Dosage: 20 MG/DAY
     Dates: start: 20070713
  17. CIFLOX [Concomitant]
     Dosage: 500 MG, BID
     Dates: start: 20070713, end: 20070726
  18. CIFLOX [Concomitant]
     Dosage: 500 MG/DAY
     Dates: start: 20070726, end: 20070803
  19. FORTUM [Concomitant]
     Indication: URINARY TRACT INFECTION
     Dosage: 1 G/DAY
     Dates: start: 20070726, end: 20070803
  20. FORTUM [Concomitant]
     Dosage: 1 G, TID
     Dates: start: 20070713, end: 20070726
  21. TEMESTA [Concomitant]
     Dosage: 1 MG/DAY
  22. CALCIPARINE [Concomitant]
     Dosage: 0.3 DF, BID
     Dates: start: 20070801
  23. CALCIPARINE [Concomitant]
     Dosage: 0.25 DF, BID
     Dates: start: 20070726, end: 20070801
  24. KARDEGIC [Concomitant]
     Dosage: 160 MG/DAY
     Dates: start: 20070727
  25. ASPIRIN [Concomitant]
     Dosage: 350 MG/DAY
     Dates: start: 20070713
  26. TENORMIN [Concomitant]
     Dosage: 25 MG/DAY, THE 50 MG/DAY
     Dates: start: 20070713, end: 20070718
  27. OMEPRAZOLE [Concomitant]
     Dosage: 20 MG/DAY
  28. LOVENOX [Concomitant]
     Dosage: 0.2/DAY THEN 0.4/DAY
     Dates: start: 20070713, end: 20070726
  29. IRBESARTAN [Concomitant]
     Dosage: 300 MG/DAY
     Dates: start: 20070718

REACTIONS (3)
  - COMA [None]
  - GLASGOW COMA SCALE ABNORMAL [None]
  - INCORRECT DOSE ADMINISTERED [None]
